FAERS Safety Report 4346411-4 (Version None)
Quarter: 2004Q1

REPORT INFORMATION
  Report Type: 
  Country: None (occurrence: None)
  Receive Date: 20040325
  Receipt Date: 20040116
  Transmission Date: 20041129
  Serious: No
  Sender: FDA-Public Use
  Company Number: USA030538095

PATIENT
  Age: 63 Year
  Sex: Female
  Weight: 58 kg

DRUGS (15)
  1. FORTEO [Suspect]
     Indication: OSTEOPOROSIS
     Dosage: 20 UG/DAY
     Dates: start: 20030523
  2. APRESOLINE [Concomitant]
  3. ASPIRIN [Concomitant]
  4. BUSPAR [Concomitant]
  5. CALCIUM [Concomitant]
  6. CLARINEX [Concomitant]
  7. MIACALCIN [Concomitant]
  8. MULTI-VITAMIN [Concomitant]
  9. PREVACID [Concomitant]
  10. SYNTHROID [Concomitant]
  11. TOPROL-XL [Concomitant]
  12. VITAMIN E [Concomitant]
  13. ZOCOR [Concomitant]
  14. GLUCOSAMINE CHONDROITIN [Concomitant]
  15. ALPRAZOLAM [Concomitant]

REACTIONS (5)
  - CONTUSION [None]
  - FOOT FRACTURE [None]
  - INJECTION SITE DISCOLOURATION [None]
  - OEDEMA PERIPHERAL [None]
  - PAIN IN EXTREMITY [None]
